FAERS Safety Report 5734779-3 (Version None)
Quarter: 2008Q2

REPORT INFORMATION
  Report Type: 
  Country: None (occurrence: None)
  Receive Date: 20080512
  Receipt Date: 20080508
  Transmission Date: 20081010
  Serious: Yes (Hospitalization)
  Sender: FDA-Public Use
  Company Number: PHHO2005US06884

PATIENT
  Age: 49 Year
  Sex: Female
  Weight: 111 kg

DRUGS (5)
  1. GLEEVEC [Suspect]
     Indication: GASTROINTESTINAL STROMAL TUMOUR
     Dosage: 400 MG, QD
     Route: 048
     Dates: start: 20050302
  2. LISINOPRIL [Concomitant]
  3. PERCOCET [Concomitant]
  4. PROPYL-THIOURACIL [Concomitant]
  5. WELLBUTRIN [Concomitant]

REACTIONS (6)
  - ABDOMINAL PAIN [None]
  - COLITIS ISCHAEMIC [None]
  - DIARRHOEA [None]
  - GASTROINTESTINAL TUBE INSERTION [None]
  - NAUSEA [None]
  - VOMITING [None]
